FAERS Safety Report 5215504-1 (Version None)
Quarter: 2007Q1

REPORT INFORMATION
  Report Type: 
  Country: None (occurrence: None)
  Receive Date: 20070123
  Receipt Date: 20070116
  Transmission Date: 20070707
  Serious: Yes (Other)
  Sender: FDA-Public Use
  Company Number: 2007UW00790

PATIENT
  Age: 38 Year
  Sex: Female
  Weight: 74.8 kg

DRUGS (2)
  1. PRILOSEC [Suspect]
     Indication: REFLUX OESOPHAGITIS
     Route: 048
     Dates: start: 20070112
  2. PRILOSEC [Suspect]
     Indication: GALLBLADDER DISORDER
     Route: 048
     Dates: start: 20070112

REACTIONS (3)
  - COUGH [None]
  - DYSPHAGIA [None]
  - URTICARIA [None]
